FAERS Safety Report 6207830-4 (Version None)
Quarter: 2009Q2

REPORT INFORMATION
  Report Type: 
  Country: None (occurrence: None)
  Receive Date: 20090522
  Receipt Date: 20090513
  Transmission Date: 20091009
  Serious: Yes (Life-Threatening, Hospitalization, Other)
  Sender: FDA-Public Use
  Company Number: 2008-04540

PATIENT
  Age: 71 Year
  Sex: Female
  Weight: 85 kg

DRUGS (5)
  1. VELCADE [Suspect]
     Indication: MULTIPLE MYELOMA
     Dosage: 2 MG, INTRAVENOUS
     Route: 042
     Dates: start: 20081111, end: 20081121
  2. VELCADE [Suspect]
  3. DEXAMETHASONE [Concomitant]
  4. MORPHINE SULFATE [Concomitant]
  5. SODIUM CLODRONATE [Concomitant]

REACTIONS (3)
  - CLOSTRIDIAL INFECTION [None]
  - NEUTROPENIC SEPSIS [None]
  - PNEUMONIA [None]
